FAERS Safety Report 13654996 (Version 1)
Quarter: 2017Q2

REPORT INFORMATION
  Report Type: Spontaneous
  Country: US (occurrence: US)
  Receive Date: 20170614
  Receipt Date: 20170614
  Transmission Date: 20170830
  Serious: Yes (Hospitalization)
  Sender: FDA-Public Use
  Company Number: None

PATIENT
  Age: 65 Year
  Sex: Male
  Weight: 82 kg

DRUGS (2)
  1. WARFARIN [Suspect]
     Active Substance: WARFARIN
     Indication: ATRIAL FIBRILLATION
     Route: 048
     Dates: start: 20110609, end: 20170220
  2. WARFARIN [Suspect]
     Active Substance: WARFARIN
     Indication: CEREBROVASCULAR ACCIDENT PROPHYLAXIS
     Route: 048
     Dates: start: 20110609, end: 20170220

REACTIONS (9)
  - Haematemesis [None]
  - Melaena [None]
  - Mouth haemorrhage [None]
  - International normalised ratio decreased [None]
  - Aspiration [None]
  - Haemoglobin decreased [None]
  - Gastric haemorrhage [None]
  - Cerebrovascular accident [None]
  - International normalised ratio increased [None]

NARRATIVE: CASE EVENT DATE: 20170221
